FAERS Safety Report 15287323 (Version 3)
Quarter: 2018Q4

REPORT INFORMATION
  Report Type: Report from Study
  Country: PT (occurrence: PT)
  Receive Date: 20180817
  Receipt Date: 20181101
  Transmission Date: 20190204
  Serious: Yes (Other)
  Sender: FDA-Public Use
  Company Number: PT-AUROBINDO-AUR-APL-2018-041849

PATIENT
  Age: 54 Year
  Sex: Male

DRUGS (15)
  1. SOFOSBUVIR [Concomitant]
     Active Substance: SOFOSBUVIR
     Indication: HEPATITIS C
     Dosage: UNK
     Route: 065
  2. EFAVIRENZ. [Suspect]
     Active Substance: EFAVIRENZ
     Indication: CHRONIC HEPATITIS C
  3. LAMIVUDINE. [Suspect]
     Active Substance: LAMIVUDINE
     Indication: CHRONIC HEPATITIS C
     Dosage: UNK
     Route: 065
  4. LEDIPASVIR [Concomitant]
     Active Substance: LEDIPASVIR
     Indication: HIV INFECTION
  5. EFAVIRENZ. [Suspect]
     Active Substance: EFAVIRENZ
     Indication: HEPATITIS C
  6. SOFOSBUVIR [Concomitant]
     Active Substance: SOFOSBUVIR
     Indication: HIV INFECTION
  7. LAMIVUDINE. [Suspect]
     Active Substance: LAMIVUDINE
     Indication: HIV INFECTION
  8. EFAVIRENZ. [Suspect]
     Active Substance: EFAVIRENZ
     Indication: ANTIRETROVIRAL THERAPY
     Dosage: UNK
     Route: 065
     Dates: start: 2014
  9. LEDIPASVIR [Concomitant]
     Active Substance: LEDIPASVIR
     Indication: HEPATITIS C
     Dosage: UNK
     Route: 065
  10. LEDIPASVIR W/SOFOSBUVIR [Suspect]
     Active Substance: LEDIPASVIR\SOFOSBUVIR
     Indication: PRODUCT USED FOR UNKNOWN INDICATION
     Dosage: UNK
     Route: 065
  11. ABACAVIR. [Suspect]
     Active Substance: ABACAVIR
     Indication: HIV INFECTION
  12. ABACAVIR. [Suspect]
     Active Substance: ABACAVIR
     Indication: CHRONIC HEPATITIS C
  13. EFAVIRENZ. [Suspect]
     Active Substance: EFAVIRENZ
     Indication: HIV INFECTION
  14. ABACAVIR. [Suspect]
     Active Substance: ABACAVIR
     Indication: HEPATITIS C
     Dosage: UNK
     Route: 065
     Dates: start: 2014
  15. LORAZEPAM. [Concomitant]
     Active Substance: LORAZEPAM
     Indication: ANXIETY
     Dosage: UNK
     Route: 065

REACTIONS (2)
  - Neuropsychiatric symptoms [Recovered/Resolved]
  - Hepatitis B reactivation [Recovered/Resolved]
